FAERS Safety Report 5753830-8 (Version None)
Quarter: 2008Q2

REPORT INFORMATION
  Report Type: 
  Country: None (occurrence: None)
  Receive Date: 20080527
  Receipt Date: 20080512
  Transmission Date: 20081010
  Serious: Yes (Life-Threatening, Hospitalization)
  Sender: FDA-Public Use
  Company Number: GXKR2008GB04402

PATIENT
  Age: 66 Year
  Sex: Female

DRUGS (1)
  1. METOCLOPRAMIDE [Suspect]
     Indication: VOMITING
     Dosage: INTRAMUSCULAR
     Route: 030

REACTIONS (12)
  - ANXIETY [None]
  - BLOOD PRESSURE DECREASED [None]
  - BLOOD PRESSURE INCREASED [None]
  - CREPITATIONS [None]
  - CYANOSIS [None]
  - DYSPNOEA [None]
  - FEELING COLD [None]
  - OXYGEN SATURATION DECREASED [None]
  - PHAEOCHROMOCYTOMA [None]
  - RESPIRATORY RATE INCREASED [None]
  - SENSATION OF HEAVINESS [None]
  - WHEEZING [None]
